FAERS Safety Report 23156084 (Version 2)
Quarter: 2023Q4

REPORT INFORMATION
  Report Type: Spontaneous
  Country: DE (occurrence: DE)
  Receive Date: 20231107
  Receipt Date: 20231120
  Transmission Date: 20240110
  Serious: Yes (Life-Threatening)
  Sender: FDA-Public Use
  Company Number: DE-SA-SAC20221021001449

PATIENT
  Age: 76 Year
  Sex: Female

DRUGS (50)
  1. CARFILZOMIB [Suspect]
     Active Substance: CARFILZOMIB
     Dosage: 103 MG (D22)
     Route: 065
     Dates: start: 20220531, end: 20220531
  2. CARFILZOMIB [Suspect]
     Active Substance: CARFILZOMIB
     Dosage: 103 MG (D8, D9, D15)
     Route: 065
     Dates: start: 20220425, end: 20220524
  3. CARFILZOMIB [Suspect]
     Active Substance: CARFILZOMIB
     Dosage: 103 MG, OTHER D1,D2
     Route: 065
     Dates: start: 20220328, end: 20220329
  4. CARFILZOMIB [Suspect]
     Active Substance: CARFILZOMIB
     Dosage: 103 MG, OTHER D1,D2,D8,D9
     Route: 065
     Dates: start: 20220228, end: 20220313
  5. CARFILZOMIB [Suspect]
     Active Substance: CARFILZOMIB
     Dosage: 103 MG, OTHER D1,D2,D8,D9, D15, D16
     Route: 065
     Dates: start: 20220131, end: 20220215
  6. CARFILZOMIB [Suspect]
     Active Substance: CARFILZOMIB
     Dosage: 103 MG, OTHER D8,D9, D15, D16
     Route: 065
     Dates: start: 20220110, end: 20220111
  7. CARFILZOMIB [Suspect]
     Active Substance: CARFILZOMIB
     Indication: Plasma cell myeloma refractory
     Dosage: 37 MG, OTHER D1, D2
     Route: 065
     Dates: start: 20211206, end: 20211207
  8. CARFILZOMIB [Suspect]
     Active Substance: CARFILZOMIB
     Dosage: 77 MG, OTHER D1
     Route: 065
     Dates: start: 20221005, end: 20221005
  9. CARFILZOMIB [Suspect]
     Active Substance: CARFILZOMIB
     Dosage: 77 MG, OTHER D8, D9, D15, D16
     Route: 065
     Dates: start: 20221012, end: 20221020
  10. CARFILZOMIB [Suspect]
     Active Substance: CARFILZOMIB
     Dosage: 81 MG, OTHER D1
     Route: 065
     Dates: start: 20220621, end: 20220621
  11. CARFILZOMIB [Suspect]
     Active Substance: CARFILZOMIB
     Dosage: 81 MG, OTHER D1, D2
     Route: 065
     Dates: start: 20220621, end: 20220622
  12. DEXAMETHASONE [Suspect]
     Active Substance: DEXAMETHASONE
     Dosage: 10 MG (D22, D23)
     Route: 065
     Dates: start: 20220531, end: 20220601
  13. DEXAMETHASONE [Suspect]
     Active Substance: DEXAMETHASONE
     Dosage: 10 MG, OTHER (D22,D23)
     Route: 065
     Dates: start: 20220321, end: 20220322
  14. DEXAMETHASONE [Suspect]
     Active Substance: DEXAMETHASONE
     Dosage: 10 MG, OTHER D1
     Route: 065
     Dates: start: 20220621, end: 20220622
  15. DEXAMETHASONE [Suspect]
     Active Substance: DEXAMETHASONE
     Dosage: 10 MG, OTHER D1
     Route: 065
     Dates: start: 20221005, end: 20221005
  16. DEXAMETHASONE [Suspect]
     Active Substance: DEXAMETHASONE
     Dosage: 10 MG, OTHER D1,D2
     Route: 065
     Dates: start: 20220328, end: 20220329
  17. DEXAMETHASONE [Suspect]
     Active Substance: DEXAMETHASONE
     Dosage: 10 MG, OTHER D1,D2,D8,D9
     Route: 065
     Dates: start: 20220228, end: 20220313
  18. DEXAMETHASONE [Suspect]
     Active Substance: DEXAMETHASONE
     Dosage: 10 MG, OTHER D1,D2,D8,D9, D15, D16, D22, D23
     Route: 065
     Dates: start: 20220131, end: 20220222
  19. DEXAMETHASONE [Suspect]
     Active Substance: DEXAMETHASONE
     Dosage: 10 MG, OTHER D8, D9, D15, D16
     Route: 065
     Dates: start: 20221012, end: 20221020
  20. DEXAMETHASONE [Suspect]
     Active Substance: DEXAMETHASONE
     Dosage: 10 MG, OTHER D8,D9,D15, D16, D22, D23
     Route: 065
     Dates: start: 20220110, end: 20220125
  21. DEXAMETHASONE [Suspect]
     Active Substance: DEXAMETHASONE
     Indication: Plasma cell myeloma refractory
     Dosage: 20 MG, OTHER D1,D2
     Route: 065
     Dates: start: 20211206, end: 20211207
  22. ISATUXIMAB [Suspect]
     Active Substance: ISATUXIMAB
     Dosage: 1600 MG, QW ((800 MG, OTHER D1)
     Route: 065
     Dates: start: 20220621, end: 20220621
  23. ISATUXIMAB [Suspect]
     Active Substance: ISATUXIMAB
     Dosage: 1600 MG, QW (800 MG, OTHER D1)
     Route: 065
     Dates: start: 20220328, end: 20220328
  24. ISATUXIMAB [Suspect]
     Active Substance: ISATUXIMAB
     Dosage: 1600 MG, QW (800 MG, OTHER D1, D15)
     Route: 065
     Dates: start: 20220131, end: 20220214
  25. ISATUXIMAB [Suspect]
     Active Substance: ISATUXIMAB
     Dosage: 400 MG, OTHER D1
     Route: 065
     Dates: start: 20221005, end: 20221005
  26. ISATUXIMAB [Suspect]
     Active Substance: ISATUXIMAB
     Dosage: 800 MG D8, 15, 22)
     Route: 065
     Dates: start: 20220110, end: 20220124
  27. ISATUXIMAB [Suspect]
     Active Substance: ISATUXIMAB
     Indication: Plasma cell myeloma refractory
     Dosage: 800 MG, QW
     Route: 065
     Dates: start: 20211206, end: 20211206
  28. ISATUXIMAB [Suspect]
     Active Substance: ISATUXIMAB
     Dosage: 800 MG (800 MG, OTHER D1)
     Route: 065
     Dates: start: 20220228, end: 20220313
  29. ISATUXIMAB [Suspect]
     Active Substance: ISATUXIMAB
     Dosage: 800 MG, QW (400 MG, OTHER D1)
     Route: 065
     Dates: start: 20221005
  30. ISATUXIMAB [Suspect]
     Active Substance: ISATUXIMAB
     Dosage: 800 MG, QW (400 MG, OTHER D1)
     Route: 065
     Dates: start: 20221005
  31. ISATUXIMAB [Suspect]
     Active Substance: ISATUXIMAB
     Dosage: 800 MG, OTHER D1
     Route: 065
     Dates: start: 20220228, end: 20220313
  32. ISATUXIMAB [Suspect]
     Active Substance: ISATUXIMAB
     Dosage: 800 MG, OTHER D1
     Route: 065
     Dates: start: 20220328, end: 20220328
  33. ISATUXIMAB [Suspect]
     Active Substance: ISATUXIMAB
     Dosage: 800 MG, OTHER D1
     Route: 065
     Dates: start: 20220621, end: 20220621
  34. ISATUXIMAB [Suspect]
     Active Substance: ISATUXIMAB
     Dosage: 800 MG, OTHER D1, D15
     Route: 065
     Dates: start: 20220131, end: 20220214
  35. CALCIUM [Concomitant]
     Active Substance: CALCIUM
     Indication: Cholecystectomy
     Dosage: UNK
     Route: 065
     Dates: start: 20221011
  36. CLEMASTINE [Concomitant]
     Active Substance: CLEMASTINE
     Indication: Prophylaxis
     Dosage: UNK, QCY
     Route: 065
     Dates: start: 20211206, end: 20221005
  37. DEFERASIROX [Concomitant]
     Active Substance: DEFERASIROX
     Indication: Product used for unknown indication
     Dosage: UNK
     Route: 065
     Dates: start: 20220914
  38. CHOLECALCIFEROL [Concomitant]
     Active Substance: CHOLECALCIFEROL
     Indication: Osteopenia
     Dosage: UNK
     Route: 065
     Dates: start: 20220926
  39. EPOETIN ALFA [Concomitant]
     Active Substance: ERYTHROPOIETIN
     Indication: Anaemia
     Dosage: UNK
     Route: 065
     Dates: start: 20200717
  40. FOLIC ACID [Concomitant]
     Active Substance: FOLIC ACID
     Indication: Rheumatic disorder
     Dosage: UNK
     Route: 065
     Dates: start: 1992
  41. L-thyrox euro [Concomitant]
     Indication: Hypothyroidism
     Dosage: UNK
     Route: 065
     Dates: start: 2017
  42. LISINOPRIL [Concomitant]
     Active Substance: LISINOPRIL
     Indication: Hypertension
     Dosage: UNK
     Route: 065
     Dates: start: 2017
  43. METHOTREXATE [Concomitant]
     Active Substance: METHOTREXATE
     Indication: Rheumatic disorder
     Dosage: UNK
     Route: 065
     Dates: start: 1992
  44. MONTELUKAST [Concomitant]
     Active Substance: MONTELUKAST SODIUM
     Indication: Rhinitis allergic
     Dosage: UNK
     Route: 065
     Dates: start: 20211130
  45. METAMIZOLE [Concomitant]
     Active Substance: METAMIZOLE
     Indication: Intervertebral disc disorder
     Dosage: UNK
     Route: 065
     Dates: start: 2018
  46. ONDANSETRON [Concomitant]
     Active Substance: ONDANSETRON
     Indication: Product used for unknown indication
     Dosage: UNK
     Route: 065
     Dates: start: 20220210
  47. ONDANSETRON [Concomitant]
     Active Substance: ONDANSETRON
     Dosage: UNK
     Route: 065
     Dates: start: 20220210, end: 20220607
  48. ACETAMINOPHEN [Concomitant]
     Active Substance: ACETAMINOPHEN
     Indication: Prophylaxis
     Dosage: UNK UNK, QCY
     Route: 065
     Dates: start: 20211206, end: 20221005
  49. PREDNISOLONE [Concomitant]
     Active Substance: PREDNISOLONE
     Indication: Rheumatic disorder
     Dosage: UNK
     Route: 065
     Dates: start: 2018
  50. VITAMIN B12 [Concomitant]
     Active Substance: CYANOCOBALAMIN
     Indication: Vitamin B12 deficiency
     Dosage: UNK
     Route: 065
     Dates: start: 20181130

REACTIONS (4)
  - Anaphylactic reaction [Recovered/Resolved]
  - Myelodysplastic syndrome [Not Recovered/Not Resolved]
  - Pancytopenia [Recovered/Resolved]
  - Serum ferritin increased [Recovering/Resolving]

NARRATIVE: CASE EVENT DATE: 20221005
